FAERS Safety Report 9902779 (Version 2)
Quarter: 2014Q1

REPORT INFORMATION
  Report Type: Spontaneous
  Country: IT (occurrence: IT)
  Receive Date: 20140217
  Receipt Date: 20140221
  Transmission Date: 20141002
  Serious: Yes (Life-Threatening)
  Sender: FDA-Public Use
  Company Number: PHHY2014IT018029

PATIENT
  Age: 65 Year
  Sex: Female

DRUGS (5)
  1. SEBIVO [Suspect]
     Indication: CHRONIC HEPATITIS B
     Dosage: 600 MG, QD
     Route: 048
     Dates: start: 20100315, end: 20140210
  2. MEDROL [Concomitant]
     Indication: URTICARIA
     Dosage: 16 MG, UNK
     Route: 048
     Dates: start: 20131029
  3. MEDROL [Concomitant]
     Dosage: 8 MG, UNK
     Route: 048
     Dates: end: 20140210
  4. XYZAL [Concomitant]
     Indication: URTICARIA
     Dosage: UNK UKN, UNK
     Route: 048
     Dates: start: 20131029, end: 20131220
  5. LACTIC ACID [Concomitant]
     Dosage: UNK UKN, UNK

REACTIONS (4)
  - Oedema peripheral [Recovering/Resolving]
  - Fibrin D dimer increased [Recovering/Resolving]
  - Atrial fibrillation [Recovering/Resolving]
  - Cardiac failure [Recovering/Resolving]
